FAERS Safety Report 14327405 (Version 3)
Quarter: 2018Q2

REPORT INFORMATION
  Report Type: Spontaneous
  Country: FR (occurrence: FR)
  Receive Date: 20171227
  Receipt Date: 20180511
  Transmission Date: 20180711
  Serious: Yes (Death)
  Sender: FDA-Public Use
  Company Number: FR-ASTRAZENECA-2017SF31527

PATIENT
  Age: 74 Year
  Sex: Male
  Weight: 165 kg

DRUGS (9)
  1. NOVORAPID [Concomitant]
     Active Substance: INSULIN ASPART
  2. KARDEGIC [Concomitant]
     Active Substance: ASPIRIN DL-LYSINE
  3. RAMIPRIL. [Concomitant]
     Active Substance: RAMIPRIL
  4. CICLETANINE HYDROCHLORIDE [Concomitant]
     Active Substance: CICLETANINE HYDROCHLORIDE
  5. PRAVASTATINE [Concomitant]
     Active Substance: PRAVASTATIN
  6. BRILIQUE [Suspect]
     Active Substance: TICAGRELOR
     Indication: ACUTE CORONARY SYNDROME
     Route: 048
     Dates: start: 20170414, end: 20170419
  7. LANTUS [Concomitant]
     Active Substance: INSULIN GLARGINE
     Dosage: 32 IU IN THE MORNING 44 IU IN THE EVENING
  8. METFORMINE [Concomitant]
     Active Substance: METFORMIN HYDROCHLORIDE
     Dosage: 1-1-1
  9. DILTIAZEM. [Concomitant]
     Active Substance: DILTIAZEM
     Dosage: 300 X 1 DAILY

REACTIONS (2)
  - Cardiac arrest [Fatal]
  - Bradycardia [Fatal]

NARRATIVE: CASE EVENT DATE: 20170419
